FAERS Safety Report 10452726 (Version 1)
Quarter: 2014Q3

REPORT INFORMATION
  Report Type: Spontaneous
  Country: US (occurrence: None)
  Receive Date: 20140911
  Receipt Date: 20140911
  Transmission Date: 20150326
  Serious: Yes (Other)
  Sender: FDA-Public Use
  Company Number: C14 059 AE

PATIENT
  Age: 35 Day
  Sex: Female

DRUGS (1)
  1. FIRST OMEPRAZOLE RX [Suspect]
     Active Substance: OMEPRAZOLE
     Indication: GASTROOESOPHAGEAL REFLUX DISEASE
     Dosage: 1 ML , BID, ORAL 8/29/2014 TO PRESENT
     Route: 048
     Dates: start: 20140829

REACTIONS (2)
  - Rash erythematous [None]
  - Crying [None]

NARRATIVE: CASE EVENT DATE: 20140829
